FAERS Safety Report 11113311 (Version 6)
Quarter: 2015Q4

REPORT INFORMATION
  Report Type: Report from Study
  Country: JP (occurrence: JP)
  Receive Date: 20150514
  Receipt Date: 20151102
  Transmission Date: 20160304
  Serious: Yes (Hospitalization)
  Sender: FDA-Public Use
  Company Number: JP-EISAI MEDICAL RESEARCH-EC-2014-000761

PATIENT
  Age: 68 Year
  Sex: Male
  Weight: 79 kg

DRUGS (24)
  1. LENVATINIB [Suspect]
     Active Substance: LENVATINIB
     Route: 048
     Dates: start: 20141028, end: 20150729
  2. LENVATINIB [Suspect]
     Active Substance: LENVATINIB
     Route: 048
     Dates: start: 20131122, end: 20141006
  3. NOVORAPID [Concomitant]
     Active Substance: INSULIN ASPART
  4. TRIAZOLAM. [Concomitant]
     Active Substance: TRIAZOLAM
  5. GLUFAST [Concomitant]
     Active Substance: MITIGLINIDE
  6. LENVATINIB [Suspect]
     Active Substance: LENVATINIB
     Indication: HEPATOCELLULAR CARCINOMA
     Route: 048
     Dates: start: 20130822, end: 20130915
  7. URSO [Concomitant]
     Active Substance: URSODIOL
  8. ATELEC [Concomitant]
     Active Substance: CILNIDIPINE
  9. LOXONIN [Concomitant]
     Active Substance: LOXOPROFEN SODIUM
  10. BLOPRESS [Concomitant]
     Active Substance: CANDESARTAN CILEXETIL
  11. MOHRUS TAPE [Concomitant]
     Active Substance: KETOPROFEN
  12. SUNRYTHM [Concomitant]
     Active Substance: PILSICAINIDE HYDROCHLORIDE
  13. LEVEMIR [Concomitant]
     Active Substance: INSULIN DETEMIR
  14. MYSLEE [Concomitant]
     Active Substance: ZOLPIDEM TARTRATE
  15. CEPHADOL [Concomitant]
     Active Substance: DIPHENIDOL HYDROCHLORIDE
  16. VESICARE [Concomitant]
     Active Substance: SOLIFENACIN SUCCINATE
  17. FUROSEMIDE. [Concomitant]
     Active Substance: FUROSEMIDE
  18. LENVATINIB [Suspect]
     Active Substance: LENVATINIB
     Route: 048
     Dates: start: 20130924, end: 20131109
  19. PARIET [Concomitant]
     Active Substance: RABEPRAZOLE SODIUM
  20. MYSER [Concomitant]
     Active Substance: DIFLUPREDNATE
  21. PRAZAXA [Concomitant]
     Active Substance: DABIGATRAN ETEXILATE MESYLATE
  22. AZUNOL GARGLE LIQUID [Concomitant]
  23. UREPEARL [Concomitant]
     Active Substance: UREA
  24. PABRON S GOLD [Concomitant]

REACTIONS (1)
  - Cerebral infarction [Not Recovered/Not Resolved]

NARRATIVE: CASE EVENT DATE: 20141007
